FAERS Safety Report 5455438-0 (Version None)
Quarter: 2007Q3

REPORT INFORMATION
  Report Type: 
  Country: None (occurrence: None)
  Receive Date: 20070913
  Receipt Date: 20070913
  Transmission Date: 20080115
  Serious: Yes (Other)
  Sender: FDA-Public Use
  Company Number: None

PATIENT
  Sex: Male
  Weight: 60.6 kg

DRUGS (1)
  1. COMPAZINE [Suspect]

REACTIONS (11)
  - ABNORMAL BEHAVIOUR [None]
  - ANXIETY [None]
  - BODY TEMPERATURE INCREASED [None]
  - CONFUSIONAL STATE [None]
  - EYE ROLLING [None]
  - HYPERHIDROSIS [None]
  - INCOHERENT [None]
  - MUSCLE RIGIDITY [None]
  - MUSCLE SPASMS [None]
  - TREMOR [None]
  - UNRESPONSIVE TO STIMULI [None]
